FAERS Safety Report 15264590 (Version 1)
Quarter: 2018Q3

REPORT INFORMATION
  Report Type: Spontaneous
  Country: AU (occurrence: AU)
  Receive Date: 20180723
  Receipt Date: 20180723
  Transmission Date: 20181010
  Serious: Yes (Life-Threatening, Hospitalization, Other)
  Sender: FDA-Public Use
  Company Number: None

PATIENT
  Age: 16 Year
  Sex: Female
  Weight: 60 kg

DRUGS (4)
  1. CONTRACEPTIVE [Concomitant]
     Active Substance: UNSPECIFIED INGREDIENT
  2. CLARATINE [Concomitant]
  3. SOTOLOL [Suspect]
     Active Substance: SOTALOL
     Indication: ARRHYTHMIA
     Dosage: ?          QUANTITY:1 TABLET(S);?
     Route: 048
     Dates: start: 20170202, end: 20180205
  4. SERTRALINE [Concomitant]
     Active Substance: SERTRALINE HYDROCHLORIDE

REACTIONS (4)
  - Loss of consciousness [None]
  - Syncope [None]
  - Coma [None]
  - Dizziness [None]

NARRATIVE: CASE EVENT DATE: 20170919
